FAERS Safety Report 5897346-7 (Version None)
Quarter: 2008Q3

REPORT INFORMATION
  Report Type: 
  Country: None (occurrence: None)
  Receive Date: 20080925
  Receipt Date: 20080318
  Transmission Date: 20090109
  Serious: No
  Sender: FDA-Public Use
  Company Number: A0714074A

PATIENT
  Age: 45 Year
  Sex: Male
  Weight: 64.1 kg

DRUGS (10)
  1. EPZICOM [Suspect]
     Indication: HIV INFECTION
     Dosage: 1TAB PER DAY
     Route: 048
     Dates: start: 20080201, end: 20080201
  2. UNKNOWN MEDICATION [Concomitant]
  3. NORVIR [Concomitant]
     Route: 048
     Dates: start: 20070411
  4. LEXAPRO [Concomitant]
     Route: 048
     Dates: start: 20070523
  5. ANDROGEL [Concomitant]
     Route: 061
     Dates: start: 20070411
  6. DIFLUCAN [Concomitant]
     Dates: end: 20070701
  7. CIALIS [Concomitant]
     Dosage: 10MG EVERY 3 DAYS
     Route: 048
     Dates: start: 20070706
  8. ACYCLOVIR [Concomitant]
     Route: 048
     Dates: end: 20070501
  9. ATIVAN [Concomitant]
     Dosage: 1MG AS REQUIRED
     Dates: start: 20070829
  10. REYATAZ [Concomitant]
     Route: 048
     Dates: start: 20070411

REACTIONS (5)
  - HYPERSENSITIVITY [None]
  - NAUSEA [None]
  - PRURITUS [None]
  - PYREXIA [None]
  - RASH [None]
